FAERS Safety Report 9516257 (Version 9)
Quarter: 2014Q2

REPORT INFORMATION
  Report Type: Report from Study
  Country: FR (occurrence: FR)
  Receive Date: 20130911
  Receipt Date: 20140627
  Transmission Date: 20141212
  Serious: Yes (Death, Hospitalization)
  Sender: FDA-Public Use
  Company Number: FR-B.I. PHARMACEUTICALS,INC./RIDGEFIELD-2013-FF-02259FF

PATIENT
  Age: 70 Year
  Sex: Female

DRUGS (3)
  1. BIBW 2992 [Suspect]
     Indication: SQUAMOUS CELL CARCINOMA OF HEAD AND NECK
     Dosage: 50 MG
     Route: 048
     Dates: start: 20130611, end: 20130903
  2. SOLUPRED [Concomitant]
     Indication: DEAFNESS
     Dosage: 40 MG
     Route: 048
     Dates: start: 20130708
  3. OGASTORO LANSOPRAZOLE [Concomitant]
     Indication: PROPHYLAXIS
     Dosage: 30 MG
     Route: 048
     Dates: start: 20130529

REACTIONS (2)
  - Haemoptysis [Fatal]
  - Lung disorder [Unknown]
